FAERS Safety Report 8899006 (Version 1)
Quarter: 2012Q4

REPORT INFORMATION
  Report Type: 
  Country: US (occurrence: US)
  Receive Date: 20121108
  Receipt Date: 20121108
  Transmission Date: 20130627
  Serious: No
  Sender: FDA-Public Use
  Company Number: US-AMGEN-USASP2012034728

PATIENT
  Age: 64 Year
  Sex: Female
  Weight: 65.76 kg

DRUGS (6)
  1. ENBREL [Suspect]
     Indication: PRODUCT USED FOR UNKNOWN INDICATION
     Dosage: 50 mg/ml, qwk
     Route: 058
  2. CENTRUM SILVER                     /01292501/ [Concomitant]
     Dosage: UNK
  3. CHANTIX [Concomitant]
     Dosage: 1 mg, UNK
  4. ALLEGRA [Concomitant]
     Dosage: 60 mg, UNK
  5. BAYER ASPIRIN [Concomitant]
     Dosage: 325 mg, UNK
  6. TYLENOL /00020001/ [Concomitant]
     Dosage: 325 mg, UNK

REACTIONS (1)
  - Injection site pain [Recovering/Resolving]
